FAERS Safety Report 14291149 (Version 2)
Quarter: 2018Q2

REPORT INFORMATION
  Report Type: Other
  Country: JP (occurrence: JP)
  Receive Date: 20171215
  Receipt Date: 20180412
  Transmission Date: 20180711
  Serious: Yes (Disabling, Other)
  Sender: FDA-Public Use
  Company Number: JP-OTSUKA-2017_013007

PATIENT
  Sex: Male

DRUGS (21)
  1. MYONAL [Concomitant]
     Active Substance: EPERISONE HYDROCHLORIDE
     Indication: PRODUCT USED FOR UNKNOWN INDICATION
     Dosage: 50 MG, QD
     Route: 048
     Dates: start: 20090417, end: 20130604
  2. SEPAZON [Concomitant]
     Active Substance: CLOXAZOLAM
     Dosage: 1 MG, QD
     Route: 048
     Dates: start: 20120705, end: 20130418
  3. SEPAZON [Concomitant]
     Active Substance: CLOXAZOLAM
     Dosage: 2 MG, QD
     Route: 048
     Dates: start: 20130910, end: 20131121
  4. RISPERIDONE. [Suspect]
     Active Substance: RISPERIDONE
     Indication: PRODUCT USED FOR UNKNOWN INDICATION
     Dosage: 1.5 TO 3 MG PER DAY
     Route: 048
     Dates: start: 20100623, end: 20120717
  5. ZYPREXA [Concomitant]
     Active Substance: OLANZAPINE
     Indication: PRODUCT USED FOR UNKNOWN INDICATION
     Dosage: 2.5 TO 7.5 MG PER DAY
     Route: 048
     Dates: start: 20120215, end: 20140410
  6. SEPAZON [Concomitant]
     Active Substance: CLOXAZOLAM
     Dosage: 1 MG, BID
     Route: 048
     Dates: start: 20130424, end: 20130508
  7. LOBU [Concomitant]
     Active Substance: LOBUCAVIR
     Indication: PRODUCT USED FOR UNKNOWN INDICATION
     Dosage: 60 MG, QD
     Route: 048
     Dates: start: 20100106, end: 20131219
  8. ABILIFY [Suspect]
     Active Substance: ARIPIPRAZOLE
     Indication: SCHIZOPHRENIA
     Dosage: 1 TO 5 TABLETS PER DAY
     Route: 048
     Dates: start: 20100510, end: 20121125
  9. SEPAZON [Concomitant]
     Active Substance: CLOXAZOLAM
     Dosage: 1 MG, QD
     Route: 048
     Dates: start: 20101124, end: 20110316
  10. SEPAZON [Concomitant]
     Active Substance: CLOXAZOLAM
     Dosage: 1 MG, QD
     Route: 048
     Dates: start: 20130522, end: 20130819
  11. SEPAZON [Concomitant]
     Active Substance: CLOXAZOLAM
     Dosage: 1 MG, QD
     Route: 048
     Dates: start: 20131219, end: 20140213
  12. AKINETON [Concomitant]
     Active Substance: BIPERIDEN HYDROCHLORIDE
     Indication: PRODUCT USED FOR UNKNOWN INDICATION
     Dosage: 1 MG, TID
     Route: 048
     Dates: start: 20100106, end: 20100922
  13. LODOPIN [Suspect]
     Active Substance: ZOTEPINE
     Indication: PRODUCT USED FOR UNKNOWN INDICATION
     Dosage: 1 TO 2 TABLETS PER DAY
     Route: 048
     Dates: start: 199608, end: 20120410
  14. SEPAZON [Concomitant]
     Active Substance: CLOXAZOLAM
     Dosage: 2 MG, QD
     Route: 048
     Dates: start: 20111031, end: 20120118
  15. SEPAZON [Concomitant]
     Active Substance: CLOXAZOLAM
     Indication: PRODUCT USED FOR UNKNOWN INDICATION
     Dosage: 2 MG, QD
     Route: 048
     Dates: start: 20100106, end: 20100922
  16. SEPAZON [Concomitant]
     Active Substance: CLOXAZOLAM
     Dosage: 1 MG, BID
     Route: 048
     Dates: start: 20110413, end: 20110413
  17. SEPAZON [Concomitant]
     Active Substance: CLOXAZOLAM
     Dosage: 1 MG, QD
     Route: 048
     Dates: start: 20110511, end: 20111003
  18. SEPAZON [Concomitant]
     Active Substance: CLOXAZOLAM
     Dosage: 1 MG, BID
     Route: 048
     Dates: start: 20140313, end: 20140313
  19. AKINETON [Concomitant]
     Active Substance: BIPERIDEN HYDROCHLORIDE
     Dosage: 1 MG, BID
     Route: 048
     Dates: start: 20101117, end: 20121126
  20. NOXTAL [Concomitant]
     Indication: PRODUCT USED FOR UNKNOWN INDICATION
     Dosage: 0.125 MG, QD
     Route: 048
     Dates: start: 20100303, end: 20100428
  21. GRANDAXIN [Concomitant]
     Active Substance: TOFISOPAM
     Indication: PRODUCT USED FOR UNKNOWN INDICATION
     Dosage: 50 MG, TID
     Route: 048
     Dates: start: 20100106, end: 20100623

REACTIONS (8)
  - Disability [Unknown]
  - Dyskinesia [Not Recovered/Not Resolved]
  - Tardive dyskinesia [Unknown]
  - Dyslalia [Unknown]
  - Mastication disorder [Unknown]
  - Blepharospasm [Unknown]
  - Dystonia [Unknown]
  - Dysphagia [Unknown]

NARRATIVE: CASE EVENT DATE: 2010
